FAERS Safety Report 13298969 (Version 1)
Quarter: 2017Q1

REPORT INFORMATION
  Report Type: Report from Study
  Country: FR (occurrence: FR)
  Receive Date: 20170306
  Receipt Date: 20170306
  Transmission Date: 20170428
  Serious: Yes (Death)
  Sender: FDA-Public Use
  Company Number: FR-PFIZER INC-2016423643

PATIENT
  Sex: Female

DRUGS (3)
  1. TOPOTECAN HYDROCHLORIDE. [Suspect]
     Active Substance: TOPOTECAN HYDROCHLORIDE
     Indication: OVARIAN CANCER
     Dosage: 8 MG/M2, CYCLIC DAILY (FROM DAY 1 TO DAY 5 AS A 30-MIN INFUSION )
     Route: 041
  2. FILGRASTIM [Concomitant]
     Active Substance: FILGRASTIM
     Dosage: 5 UG/KG, CYCLIC DAILY FROM DAY 6 UP TO THE TIME OF APHERESIS
  3. CYCLOPHOSPHAMIDE. [Concomitant]
     Active Substance: CYCLOPHOSPHAMIDE
     Indication: OVARIAN CANCER
     Dosage: 60 MG/KG, CYCLIC DAILY (OVER 2 DAYS, ON DAYS 1 AND 2)

REACTIONS (2)
  - Septic shock [Fatal]
  - Multiple organ dysfunction syndrome [Fatal]
